FAERS Safety Report 17872297 (Version 3)
Quarter: 2020Q4

REPORT INFORMATION
  Report Type: Report from Study
  Country: US (occurrence: US)
  Receive Date: 20200608
  Receipt Date: 20201013
  Transmission Date: 20210113
  Serious: Yes (Hospitalization, Other)
  Sender: FDA-Public Use
  Company Number: US-BRISTOL-MYERS SQUIBB COMPANY-BMS-2020-043532

PATIENT
  Age: 54 Year
  Sex: Female
  Weight: 95.7 kg

DRUGS (3)
  1. NIVOLUMAB [Suspect]
     Active Substance: NIVOLUMAB
     Indication: GLIOBLASTOMA MULTIFORME
     Dosage: 240 MILLIGRAM, Q2WK, MAINTENANCE CYCLE 1 D1, TOTAL DOSE ADMINISTERED :1440 MILLIGRAM
     Route: 065
     Dates: start: 20200309
  2. VALACICLOVIR [Suspect]
     Active Substance: VALACYCLOVIR HYDROCHLORIDE
     Indication: GLIOBLASTOMA MULTIFORME
     Dosage: 84 GRAM,TOTAL DOSE ADMINISTERED
     Route: 065
  3. AGLATIMAGENE BESADENOVEC [Suspect]
     Active Substance: AGLATIMAGENE BESADENOVEC
     Indication: GLIOBLASTOMA MULTIFORME
     Dosage: 1 MILLILITER,TOTAL DOSE ADMINISTERED
     Route: 065

REACTIONS (1)
  - Seizure [Recovered/Resolved]

NARRATIVE: CASE EVENT DATE: 20200525
